FAERS Safety Report 4543617-6 (Version None)
Quarter: 2005Q1

REPORT INFORMATION
  Report Type: 
  Country: None (occurrence: None)
  Receive Date: 20050103
  Receipt Date: 20041220
  Transmission Date: 20050727
  Serious: Yes (Other)
  Sender: FDA-Public Use
  Company Number: CN-GLAXOSMITHKLINE-B0362894A

PATIENT
  Sex: Male

DRUGS (2)
  1. HEPTODIN [Suspect]
     Indication: HEPATITIS B
     Dosage: 100MG PER DAY
     Route: 048
  2. CHINESE MEDICATION [Concomitant]
     Indication: HEPATITIS B
     Route: 065

REACTIONS (2)
  - HEPATITIS [None]
  - HEPATITIS B VIRUS [None]
